FAERS Safety Report 7844962-9 (Version None)
Quarter: 2011Q4

REPORT INFORMATION
  Report Type: 
  Country: None (occurrence: None)
  Receive Date: 20111017
  Receipt Date: 20111007
  Transmission Date: 20120403
  Serious: Yes (Hospitalization, Other)
  Sender: FDA-Public Use
  Company Number: 2011SP005792

PATIENT
  Age: 27 Year
  Sex: Female
  Weight: 68.0396 kg

DRUGS (1)
  1. NUVARING [Suspect]
     Indication: CONTRACEPTION
     Dates: start: 20040101, end: 20070301

REACTIONS (18)
  - TRANSIENT ISCHAEMIC ATTACK [None]
  - NEOPLASM MALIGNANT [None]
  - PHOTOSENSITIVITY REACTION [None]
  - NAUSEA [None]
  - FATIGUE [None]
  - COAGULOPATHY [None]
  - VOMITING [None]
  - NEUROPATHY PERIPHERAL [None]
  - INFECTION [None]
  - OVARIAN CYST [None]
  - SINUSITIS [None]
  - LOWER RESPIRATORY TRACT INFECTION [None]
  - DRUG HYPERSENSITIVITY [None]
  - NECK PAIN [None]
  - MIGRAINE [None]
  - ACARODERMATITIS [None]
  - RESPIRATORY DISTRESS [None]
  - ABDOMINAL DISCOMFORT [None]
